FAERS Safety Report 11770600 (Version 1)
Quarter: 2015Q4

REPORT INFORMATION
  Report Type: Spontaneous
  Country: US (occurrence: None)
  Receive Date: 20151123
  Receipt Date: 20151123
  Transmission Date: 20160304
  Serious: No
  Sender: FDA-Public Use
  Company Number: US-MDT-ADR-2015-02218

PATIENT
  Age: 50 Year
  Sex: Female

DRUGS (1)
  1. BACLOFEN INTRATHECAL [Suspect]
     Active Substance: BACLOFEN
     Indication: MUSCLE SPASTICITY

REACTIONS (6)
  - Therapeutic response decreased [None]
  - Therapy change [None]
  - Disease complication [None]
  - Pain [None]
  - Anxiety [None]
  - Device malfunction [None]
